FAERS Safety Report 20708185 (Version 4)
Quarter: 2022Q3

REPORT INFORMATION
  Report Type: Spontaneous
  Country: ES (occurrence: ES)
  Receive Date: 20220414
  Receipt Date: 20220913
  Transmission Date: 20221027
  Serious: Yes (Other)
  Sender: FDA-Public Use
  Company Number: ES-PFIZER INC-202200474213

PATIENT
  Sex: Female
  Weight: 71.9 kg

DRUGS (3)
  1. LETROZOLE [Suspect]
     Active Substance: LETROZOLE
     Indication: Breast cancer metastatic
     Dosage: 2.5 MILLIGRAM, ONCE A DAY (2.5 MG, 1 EVERY 24H )
     Route: 048
     Dates: start: 20190316
  2. PALBOCICLIB [Suspect]
     Active Substance: PALBOCICLIB
     Indication: Breast cancer metastatic
     Dosage: 125 MILLIGRAM, ONCE A DAY (125 MG, 1 EVERY 24HR FOR 21 DAYS, REST 7 DAYS )
     Route: 048
     Dates: start: 20190316, end: 20190412
  3. DORMIDINA [Concomitant]
     Indication: Insomnia
     Dosage: UNK
     Route: 048

REACTIONS (2)
  - Neutrophil count decreased [Recovered/Resolved]
  - Arthralgia [Recovered/Resolved]

NARRATIVE: CASE EVENT DATE: 20190409
